FAERS Safety Report 13192337 (Version 1)
Quarter: 2017Q1

REPORT INFORMATION
  Report Type: Report from Study
  Country: DE (occurrence: DE)
  Receive Date: 20170207
  Receipt Date: 20170207
  Transmission Date: 20170428
  Serious: Yes (Other)
  Sender: FDA-Public Use
  Company Number: PHHY2016DE134514

PATIENT
  Sex: Female

DRUGS (9)
  1. METHOTREXATE. [Concomitant]
     Active Substance: METHOTREXATE
     Indication: PSORIASIS
     Dosage: 25 MG, QW
     Route: 058
     Dates: start: 20130902
  2. PANTOPRAZOL [Concomitant]
     Active Substance: PANTOPRAZOLE SODIUM
     Indication: GASTRIC DISORDER
     Dosage: 40 MG, UNK 1-0-1
     Route: 048
     Dates: start: 20141001
  3. FENTANYL. [Concomitant]
     Active Substance: FENTANYL
     Indication: PSORIATIC ARTHROPATHY
     Dosage: 12 UG/HR, EVERY 3 DAYS
     Route: 050
     Dates: start: 20160601
  4. IBU [Concomitant]
     Active Substance: IBUPROFEN
     Indication: PSORIATIC ARTHROPATHY
     Dosage: 1 DF, QD
     Route: 048
     Dates: start: 20060101
  5. COSENTYX [Suspect]
     Active Substance: SECUKINUMAB
     Indication: PSORIASIS
     Dosage: 300 MG (PER APPLICATION)
     Route: 065
     Dates: start: 20160913
  6. VENLAFAXINE [Concomitant]
     Active Substance: VENLAFAXINE HYDROCHLORIDE
     Indication: DEPRESSION
     Dosage: 75 MG, QD
     Route: 048
     Dates: start: 20140401
  7. ARCOXIA [Concomitant]
     Active Substance: ETORICOXIB
     Indication: PSORIATIC ARTHROPATHY
     Dosage: 90 MG, QD
     Route: 048
     Dates: start: 20140201
  8. TILIDIN AL COMP [Concomitant]
     Indication: PSORIATIC ARTHROPATHY
     Dosage: 108 MG (100MG/8MG 0-0-1), QD
     Route: 048
     Dates: start: 20160801
  9. LANTAREL [Concomitant]
     Active Substance: METHOTREXATE SODIUM
     Indication: PSORIATIC ARTHROPATHY
     Dosage: 1 DF, QW
     Route: 058
     Dates: start: 201511

REACTIONS (6)
  - Eczema [Unknown]
  - Pyrexia [Unknown]
  - Genital infection fungal [Recovering/Resolving]
  - Oral fungal infection [Recovering/Resolving]
  - Skin burning sensation [Unknown]
  - Fungal rhinitis [Recovering/Resolving]

NARRATIVE: CASE EVENT DATE: 20160919
